FAERS Safety Report 15942149 (Version 1)
Quarter: 2019Q1

REPORT INFORMATION
  Report Type: Spontaneous
  Country: US (occurrence: US)
  Receive Date: 20190209
  Receipt Date: 20190209
  Transmission Date: 20190417
  Serious: No
  Sender: FDA-Public Use
  Company Number: US-BIOGEN-2019BI00683711

PATIENT
  Age: 40 Year
  Sex: Female

DRUGS (2)
  1. TYSABRI [Suspect]
     Active Substance: NATALIZUMAB
     Indication: MULTIPLE SCLEROSIS
     Route: 065
     Dates: start: 20130113, end: 20130404
  2. TYSABRI [Suspect]
     Active Substance: NATALIZUMAB
     Route: 065
     Dates: start: 20181004, end: 20181101

REACTIONS (6)
  - Tinnitus [Unknown]
  - Vertigo [Unknown]
  - Balance disorder [Unknown]
  - Infection [Unknown]
  - Hypoacusis [Unknown]
  - Gait disturbance [Unknown]

NARRATIVE: CASE EVENT DATE: 201811
